FAERS Safety Report 8565496-2 (Version None)
Quarter: 2012Q3

REPORT INFORMATION
  Report Type: 
  Country: None (occurrence: None)
  Receive Date: 20120803
  Receipt Date: 20120725
  Transmission Date: 20120928
  Serious: Yes (Hospitalization, Other)
  Sender: FDA-Public Use
  Company Number: US-009507513-1201USA04014

PATIENT

DRUGS (9)
  1. VITAMIN D [Concomitant]
     Dates: start: 19700101
  2. FOSAMAX [Suspect]
     Indication: OSTEOPOROSIS
     Dosage: 70 MG, QW
     Route: 048
     Dates: start: 20000301, end: 20100701
  3. MK-9359 [Concomitant]
     Dates: start: 19960101
  4. PROTONIX [Concomitant]
     Dates: start: 19900101
  5. ZETIA [Concomitant]
     Route: 048
  6. CENTRUM (MINERALS (UNSPECIFIED) (+) VITAMINS (UNSPECIFIED)) [Concomitant]
     Dosage: 1 DF, QD
     Dates: start: 19700101
  7. MULTI-VITAMINS [Concomitant]
     Dosage: 1 DF, QD
     Dates: start: 19700101
  8. CALCIUM (UNSPECIFIED) [Concomitant]
     Dates: start: 19700101
  9. ZOCOR [Concomitant]
     Route: 048

REACTIONS (28)
  - ATELECTASIS [None]
  - HYPERCHROMIC ANAEMIA [None]
  - DEPRESSION [None]
  - TOOTH DISORDER [None]
  - EXOSTOSIS [None]
  - TENDON DISORDER [None]
  - VOMITING [None]
  - OSTEOARTHRITIS [None]
  - CHRONIC OBSTRUCTIVE PULMONARY DISEASE [None]
  - VITAMIN D DECREASED [None]
  - MITRAL VALVE PROLAPSE [None]
  - NIGHT SWEATS [None]
  - APPLICATION SITE ATROPHY [None]
  - FALL [None]
  - HYPOALBUMINAEMIA [None]
  - REVERSIBLE AIRWAYS OBSTRUCTION [None]
  - NAUSEA [None]
  - ROTATOR CUFF SYNDROME [None]
  - URINARY INCONTINENCE [None]
  - HYPOTHYROIDISM [None]
  - EMPHYSEMA [None]
  - OSTEOPENIA [None]
  - BURSITIS [None]
  - INTERVERTEBRAL DISC DEGENERATION [None]
  - FEMUR FRACTURE [None]
  - ASTHENIA [None]
  - GASTRITIS [None]
  - ARTHRALGIA [None]
